FAERS Safety Report 23084902 (Version 1)
Quarter: 2023Q4

REPORT INFORMATION
  Report Type: Spontaneous
  Country: AT (occurrence: None)
  Receive Date: 20231019
  Receipt Date: 20231019
  Transmission Date: 20240109
  Serious: Yes (Life-Threatening, Other)
  Sender: FDA-Public Use
  Company Number: 2023A237314

PATIENT
  Age: 39 Year
  Sex: Male

DRUGS (4)
  1. SEROQUEL [Suspect]
     Active Substance: QUETIAPINE FUMARATE
     Indication: Depression
     Route: 048
  2. SEROQUEL [Suspect]
     Active Substance: QUETIAPINE FUMARATE
     Indication: Panic disorder
     Route: 048
  3. SERALINE [Concomitant]
     Indication: Depression
  4. SERALINE [Concomitant]
     Indication: Panic disorder

REACTIONS (2)
  - Suicidal ideation [Not Recovered/Not Resolved]
  - Off label use [Unknown]
